FAERS Safety Report 8936837 (Version 1)
Quarter: 2012Q4

REPORT INFORMATION
  Report Type: 
  Country: US (occurrence: US)
  Receive Date: 20121130
  Receipt Date: 20121130
  Transmission Date: 20130627
  Serious: Yes (Death, Hospitalization)
  Sender: FDA-Public Use
  Company Number: US-MILLENNIUM PHARMACEUTICALS, INC.-2012-08459

PATIENT
  Age: 18 Year
  Sex: Female
  Weight: 77.5 kg

DRUGS (13)
  1. VELCADE [Suspect]
     Indication: ACUTE MYELOID LEUKAEMIA
     Dosage: 1.3 mg/m2, Cyclic
     Route: 040
     Dates: start: 20120703, end: 20121026
  2. VELCADE [Suspect]
     Dosage: 1.3 mg/m2, Cyclic
     Route: 042
     Dates: start: 20120703, end: 20121026
  3. VELCADE [Suspect]
     Dosage: 1.0 mg/m2, Cyclic
     Route: 042
     Dates: start: 20120703, end: 20121026
  4. CYTARABINE [Suspect]
     Indication: ACUTE MYELOID LEUKAEMIA
     Dosage: UNK, Cyclic
     Route: 037
     Dates: start: 20120703, end: 20121022
  5. CYTARABINE [Suspect]
     Dosage: 100 mg/m2, Cyclic
     Route: 042
     Dates: start: 20120703, end: 20121022
  6. CYTARABINE [Suspect]
     Dosage: 1000 mg/m2, Cyclic
     Route: 042
     Dates: start: 20120703, end: 20121022
  7. MITOXANTRONE HYDROCHLORIDE [Suspect]
     Indication: ACUTE MYELOID LEUKAEMIA
     Dosage: 12 mg/m2, Cyclic
     Route: 042
     Dates: start: 20120703, end: 20121024
  8. ETOPOSIDE [Suspect]
     Indication: ACUTE MYELOID LEUKAEMIA
     Dosage: 100 mg/m2, Cyclic
     Route: 042
     Dates: start: 20120703, end: 201210
  9. ETOPOSIDE [Suspect]
     Dosage: 150 mg/m2, Cyclic
     Route: 042
  10. DAUNORUBICIN HYDROCHLORIDE [Suspect]
     Indication: ACUTE MYELOID LEUKAEMIA
     Dosage: 50 mg/m2, Cyclic
     Route: 042
     Dates: start: 20120703, end: 201210
  11. CEFEPIME [Suspect]
     Indication: PRODUCT USED FOR UNKNOWN INDICATION
     Dosage: UNK
  12. ZOSYN [Suspect]
     Indication: PRODUCT USED FOR UNKNOWN INDICATION
  13. CASPOFUNGIN [Concomitant]
     Indication: PRODUCT USED FOR UNKNOWN INDICATION

REACTIONS (2)
  - Hyperammonaemia [Fatal]
  - Caecitis [Not Recovered/Not Resolved]
